FAERS Safety Report 9432375 (Version 1)
Quarter: 2013Q3

REPORT INFORMATION
  Report Type: Spontaneous
  Country: US (occurrence: None)
  Receive Date: 20130729
  Receipt Date: 20130729
  Transmission Date: 20140515
  Serious: Yes (Hospitalization)
  Sender: FDA-Public Use
  Company Number: IMP_06765_2013

PATIENT
  Age: 68 Year
  Sex: Female

DRUGS (1)
  1. MIDODRINE [Suspect]
     Indication: ORTHOSTATIC HYPOTENSION

REACTIONS (3)
  - Urinary retention [None]
  - Neurogenic bladder [None]
  - Toxicity to various agents [None]
